FAERS Safety Report 25133891 (Version 1)
Quarter: 2025Q1

REPORT INFORMATION
  Report Type: Spontaneous
  Country: US (occurrence: US)
  Receive Date: 20250328
  Receipt Date: 20250328
  Transmission Date: 20250409
  Serious: Yes (Death, Other)
  Sender: CIPLA
  Company Number: US-CIPLA (EU) LIMITED-2025US03721

PATIENT

DRUGS (1)
  1. AMLODIPINE [Suspect]
     Active Substance: AMLODIPINE BESYLATE
     Indication: Product used for unknown indication
     Route: 065

REACTIONS (8)
  - Cardiac arrest [Fatal]
  - Multiple organ dysfunction syndrome [Unknown]
  - Vasoplegia syndrome [Unknown]
  - Cardiac failure high output [Unknown]
  - Toxicity to various agents [Unknown]
  - Overdose [Unknown]
  - Hypotension [Unknown]
  - Somnolence [Unknown]
